FAERS Safety Report 5678874-6 (Version None)
Quarter: 2008Q1

REPORT INFORMATION
  Report Type: 
  Country: None (occurrence: None)
  Receive Date: 20080325
  Receipt Date: 20080313
  Transmission Date: 20080703
  Serious: Yes (Other)
  Sender: FDA-Public Use
  Company Number: HQWYE369922JUL04

PATIENT
  Sex: Female

DRUGS (8)
  1. PREMPRO [Suspect]
  2. MEDROXYPROGESTERONE ACETATE [Suspect]
  3. CONJUGATED ESTROGENS [Suspect]
  4. MEDROXYPROGESTERONE ACETATE [Suspect]
  5. CENESTIN [Suspect]
  6. CYCRIN [Suspect]
  7. ESTRADIOL/NORETHISTERONE [Suspect]
  8. ESTROGENS [Suspect]

REACTIONS (2)
  - BREAST CANCER METASTATIC [None]
  - OESTROGEN RECEPTOR ASSAY POSITIVE [None]
